FAERS Safety Report 13049849 (Version 1)
Quarter: 2016Q4

REPORT INFORMATION
  Report Type: Spontaneous
  Country: US (occurrence: US)
  Receive Date: 20161221
  Receipt Date: 20161221
  Transmission Date: 20170207
  Serious: Yes (Hospitalization, Other)
  Sender: FDA-Public Use
  Company Number: US-DRREDDYS-USA/USA/16/0064899

PATIENT
  Age: 55 Year
  Sex: Male

DRUGS (6)
  1. CEFTRIAXONE. [Concomitant]
     Active Substance: CEFTRIAXONE
     Indication: STREPTOCOCCAL BACTERAEMIA
  2. HALOPERIDOL. [Suspect]
     Active Substance: HALOPERIDOL
     Indication: AGITATION
     Dosage: EVERY HOUR AS NEEDED
     Route: 048
  3. RISPERIDONE. [Suspect]
     Active Substance: RISPERIDONE
     Indication: AGITATION
     Dosage: AT BEDTIME
     Route: 048
  4. CEFTRIAXONE. [Concomitant]
     Active Substance: CEFTRIAXONE
     Indication: ACUTE ENDOCARDITIS
     Route: 042
  5. HALOPERIDOL. [Suspect]
     Active Substance: HALOPERIDOL
     Dosage: EVERY 12 HOURS AS NEEDED
     Route: 042
  6. PRAZOSIN [Concomitant]
     Active Substance: PRAZOSIN
     Indication: AGITATION
     Route: 048

REACTIONS (3)
  - Dysphagia [Recovering/Resolving]
  - Cogwheel rigidity [Recovering/Resolving]
  - Extrapyramidal disorder [Recovering/Resolving]
